FAERS Safety Report 9772440 (Version 1)
Quarter: 2013Q4

REPORT INFORMATION
  Report Type: Spontaneous
  Country: FR (occurrence: FR)
  Receive Date: 20131219
  Receipt Date: 20131219
  Transmission Date: 20140711
  Serious: Yes (Congenital Anomaly, Other)
  Sender: FDA-Public Use
  Company Number: FR-MERCK-1312FRA007491

PATIENT
  Sex: Male

DRUGS (3)
  1. COZAAR 100MG, COMPRIM? PELLICUL? [Suspect]
     Dosage: UNK
     Route: 064
     Dates: start: 201304, end: 20130815
  2. PLAQUENIL [Suspect]
     Dosage: UNK
     Route: 064
     Dates: start: 201304, end: 20131104
  3. DISULONE [Suspect]
     Dosage: UNK
     Route: 064
     Dates: start: 201304, end: 20130815

REACTIONS (4)
  - Cleft lip [Recovered/Resolved with Sequelae]
  - Cleft palate [Recovered/Resolved with Sequelae]
  - Premature baby [Recovered/Resolved with Sequelae]
  - Exposure during pregnancy [Unknown]
